FAERS Safety Report 5073421-4 (Version None)
Quarter: 2006Q3

REPORT INFORMATION
  Report Type: 
  Country: None (occurrence: None)
  Receive Date: 20060717
  Receipt Date: 20041228
  Transmission Date: 20061208
  Serious: No
  Sender: FDA-Public Use
  Company Number: 2004001057

PATIENT
  Sex: Female

DRUGS (6)
  1. TARCEVA [Suspect]
     Indication: NON-SMALL CELL LUNG CANCER
     Dosage: 150 MG (QD), ORAL
     Route: 048
     Dates: start: 20041218
  2. CELEBREX [Concomitant]
  3. VITAMINS(VITAMINS) [Concomitant]
  4. AMBIEN [Concomitant]
  5. ZOMETA [Concomitant]
  6. AVASTIN [Concomitant]

REACTIONS (7)
  - CHEST DISCOMFORT [None]
  - DIARRHOEA [None]
  - DRY SKIN [None]
  - HAIR GROWTH ABNORMAL [None]
  - HYPERCHLORHYDRIA [None]
  - MUSCLE SPASMS [None]
  - RASH [None]
